FAERS Safety Report 16942672 (Version 1)
Quarter: 2019Q4

REPORT INFORMATION
  Report Type: Report from Study
  Country: US (occurrence: US)
  Receive Date: 20191021
  Receipt Date: 20191021
  Transmission Date: 20200122
  Serious: Yes (Death, Hospitalization, Other)
  Sender: FDA-Public Use
  Company Number: US-TAKEDA-2019TUS051526

PATIENT
  Age: 61 Year
  Sex: Female

DRUGS (1)
  1. PONATINIB [Suspect]
     Active Substance: PONATINIB
     Indication: GASTROINTESTINAL STROMAL TUMOUR
     Dosage: 45 MILLIGRAM, QD
     Route: 048
     Dates: start: 20190909

REACTIONS (4)
  - Death [Fatal]
  - Adverse drug reaction [Unknown]
  - Gastrointestinal stromal tumour [Unknown]
  - Off label use [Unknown]

NARRATIVE: CASE EVENT DATE: 20191002
